FAERS Safety Report 21043497 (Version 1)
Quarter: 2022Q3

REPORT INFORMATION
  Report Type: Report from Study
  Country: CA (occurrence: CA)
  Receive Date: 20220705
  Receipt Date: 20220705
  Transmission Date: 20221027
  Serious: Yes (Other)
  Sender: FDA-Public Use
  Company Number: CA-BAUSCH-BL-2020-019654

PATIENT
  Sex: Female

DRUGS (9)
  1. CONTRAVE [Suspect]
     Active Substance: BUPROPION HYDROCHLORIDE\NALTREXONE HYDROCHLORIDE
     Indication: Weight control
     Dosage: 90/8 MG
     Route: 048
     Dates: start: 202005, end: 2020
  2. CONTRAVE [Suspect]
     Active Substance: BUPROPION HYDROCHLORIDE\NALTREXONE HYDROCHLORIDE
     Dosage: ONE IN THE MORNING AND TWO AT NIGHT, 90 MG/8MG, MIDDLE (1 IN 12 HR)
     Route: 048
     Dates: start: 2020, end: 20200627
  3. CONTRAVE [Suspect]
     Active Substance: BUPROPION HYDROCHLORIDE\NALTREXONE HYDROCHLORIDE
     Dosage: 90/8 MG, 1 TABLET DAILY (SECOND ATTEMPT; WEEK 1)
     Route: 048
     Dates: start: 20210409, end: 20210415
  4. CONTRAVE [Suspect]
     Active Substance: BUPROPION HYDROCHLORIDE\NALTREXONE HYDROCHLORIDE
     Dosage: 90MG/8 MG; (SECOND ATTEMPT; WEEK 2)
     Route: 048
     Dates: start: 20210416, end: 20210422
  5. CONTRAVE [Suspect]
     Active Substance: BUPROPION HYDROCHLORIDE\NALTREXONE HYDROCHLORIDE
     Dosage: 90MG/8 MG; 2 TABLETS IN THE MORNING AND 1 TABLET IN EVENING; (SECOND ATTEMPT; WEEK 3 )
     Route: 048
     Dates: start: 20210423, end: 20210429
  6. CONTRAVE [Suspect]
     Active Substance: BUPROPION HYDROCHLORIDE\NALTREXONE HYDROCHLORIDE
     Dosage: 90MG/8 MG; (SECOND ATTEMPT; WEEK 4) (2 DOSAGE FORMS, 1 IN 12 HR)
     Route: 048
     Dates: start: 20210430
  7. CONTRAVE [Suspect]
     Active Substance: BUPROPION HYDROCHLORIDE\NALTREXONE HYDROCHLORIDE
     Dosage: 90MG/8 MG; 3RD MONTH TAKING 2 TABS DAY 1 TABLET IN THE MORNING AND 1 TABLET IN EVENING
     Route: 048
     Dates: start: 20210607
  8. CONTRAVE [Suspect]
     Active Substance: BUPROPION HYDROCHLORIDE\NALTREXONE HYDROCHLORIDE
     Dosage: 90MG/8 MG, 4 TABS DAILY
     Route: 048
     Dates: start: 2021, end: 202109
  9. EFFEXOR [Concomitant]
     Active Substance: VENLAFAXINE HYDROCHLORIDE
     Indication: Depression
     Dosage: 225 MG
     Route: 048

REACTIONS (6)
  - Haematochezia [Unknown]
  - Head discomfort [Unknown]
  - Fatigue [Unknown]
  - Headache [Unknown]
  - Constipation [Recovering/Resolving]
  - Intentional product use issue [Unknown]

NARRATIVE: CASE EVENT DATE: 20200101
